FAERS Safety Report 10180755 (Version 1)
Quarter: 2014Q2

REPORT INFORMATION
  Report Type: Spontaneous
  Country: US (occurrence: US)
  Receive Date: 20140519
  Receipt Date: 20140519
  Transmission Date: 20141212
  Serious: No
  Sender: FDA-Public Use
  Company Number: US-AMGEN INC.-USASP2014013812

PATIENT
  Age: 72 Year
  Sex: Female

DRUGS (4)
  1. PROLIA [Suspect]
     Indication: OSTEOPOROSIS
     Route: 065
  2. CALCIUM + VITAMIN D                /00944201/ [Concomitant]
     Dosage: 2000 MG, UNK
  3. LOSARTAN [Concomitant]
  4. PANTOPRAZOLE [Concomitant]

REACTIONS (4)
  - Muscle spasms [Unknown]
  - Arthralgia [Unknown]
  - Musculoskeletal pain [Unknown]
  - Pain in extremity [Unknown]
